FAERS Safety Report 17982844 (Version 1)
Quarter: 2020Q3

REPORT INFORMATION
  Report Type: Spontaneous
  Country: US (occurrence: US)
  Receive Date: 20200703
  Receipt Date: 20200703
  Transmission Date: 20201103
  Serious: No
  Sender: FDA-Public Use
  Company Number: None

PATIENT
  Age: 75 Year
  Sex: Female

DRUGS (14)
  1. ESTRADIOL 10MCG VAGINAL TABS [Concomitant]
     Dates: start: 20180308
  2. PROLIA [Concomitant]
     Active Substance: DENOSUMAB
  3. SYNTHROID [Concomitant]
     Active Substance: LEVOTHYROXINE SODIUM
  4. FOLIC ACID 1MG TABLETS [Concomitant]
     Active Substance: FOLIC ACID
  5. ESTRADIOL 1MG TAB [Concomitant]
  6. RESTASIS OPTH SOL [Concomitant]
  7. VITAMIN D 1,000UNITS [Concomitant]
  8. KETOCONAZOLE SHAMPOO [Concomitant]
     Active Substance: KETOCONAZOLE
  9. MAGNESIUM 250MG [Concomitant]
  10. CALCIUM WITH VIT D 600MG [Concomitant]
  11. OTEZLA [Concomitant]
     Active Substance: APREMILAST
     Dates: start: 20200406
  12. PREDNISONE 5MG TAB [Concomitant]
     Active Substance: PREDNISONE
  13. VANIQUA CREAM [Concomitant]
  14. ENBREL [Suspect]
     Active Substance: ETANERCEPT
     Indication: PSORIATIC ARTHROPATHY
     Dosage: ?          OTHER FREQUENCY:TWICE WEEKLY;?
     Route: 058
     Dates: start: 20200519, end: 20200630

REACTIONS (1)
  - Injection site inflammation [None]

NARRATIVE: CASE EVENT DATE: 20200601
